FAERS Safety Report 9363130 (Version 1)
Quarter: 2013Q2

REPORT INFORMATION
  Report Type: Spontaneous
  Country: US (occurrence: None)
  Receive Date: 20130621
  Receipt Date: 20130621
  Transmission Date: 20140414
  Serious: Yes (Hospitalization)
  Sender: FDA-Public Use
  Company Number: None

PATIENT
  Age: 45 Year
  Sex: Female
  Weight: 54.43 kg

DRUGS (8)
  1. SULPHAMETHOXAZOLE/TRIMETHOPRIM [Suspect]
     Indication: SINUSITIS
     Route: 048
     Dates: start: 20130509, end: 20130524
  2. LOSARTAN [Concomitant]
  3. DIFLUCAN [Concomitant]
  4. VIT D [Concomitant]
  5. SINGULIR [Concomitant]
  6. NORTRIPTYLINE [Concomitant]
  7. FLONASE [Concomitant]
  8. ZYRTEC [Concomitant]

REACTIONS (8)
  - Rash erythematous [None]
  - Rash generalised [None]
  - Lip blister [None]
  - Oral mucosal blistering [None]
  - Epistaxis [None]
  - Blister [None]
  - Ocular hyperaemia [None]
  - Vaginal infection [None]
